FAERS Safety Report 10572989 (Version 1)
Quarter: 2014Q4

REPORT INFORMATION
  Report Type: Spontaneous
  Country: ES (occurrence: None)
  Receive Date: 20141106
  Receipt Date: 20141106
  Transmission Date: 20150529
  Serious: Yes (Other)
  Sender: FDA-Public Use
  Company Number: FK201404788

PATIENT
  Age: 55 Year
  Sex: Female

DRUGS (3)
  1. RITUXIMAB (RITUXIMAB) (RITUXIMAB) [Suspect]
     Active Substance: RITUXIMAB
     Indication: CHRONIC LYMPHOCYTIC LEUKAEMIA
     Dosage: CYCLICAL
     Dates: start: 200806
  2. CYCLOPHOSPHAMIDE. [Concomitant]
     Active Substance: CYCLOPHOSPHAMIDE
  3. FLUDARABINE (MANUFACTURER UNKNOWN) (FLUDARABINE PHOSPHATE) (FLUDARABINE PHOSPHATE) [Suspect]
     Active Substance: FLUDARABINE PHOSPHATE
     Indication: CHRONIC LYMPHOCYTIC LEUKAEMIA
     Dosage: CYCLICAL
     Dates: start: 200709

REACTIONS (2)
  - Bone marrow toxicity [None]
  - Hepatitis B [None]
